FAERS Safety Report 6293272-2 (Version None)
Quarter: 2009Q3

REPORT INFORMATION
  Report Type: 
  Country: None (occurrence: None)
  Receive Date: 20090731
  Receipt Date: 20090720
  Transmission Date: 20100115
  Serious: Yes (Hospitalization)
  Sender: FDA-Public Use
  Company Number: CH-WATSON-2009-05625

PATIENT
  Age: 74 Year
  Sex: Female
  Weight: 50.8 kg

DRUGS (3)
  1. CLONIDINE [Suspect]
     Indication: PAIN MANAGEMENT
     Dosage: 10 MG, UNK
  2. MORPHINE SULFATE INJ [Suspect]
     Indication: PAIN MANAGEMENT
     Dosage: 10 MG, UNK
  3. BUPIVACAINE [Suspect]
     Indication: PAIN MANAGEMENT

REACTIONS (2)
  - INJECTION SITE NECROSIS [None]
  - INJECTION SITE ULCER [None]
